FAERS Safety Report 9910145 (Version 2)
Quarter: 2014Q1

REPORT INFORMATION
  Report Type: Spontaneous
  Country: US (occurrence: US)
  Receive Date: 20140219
  Receipt Date: 20140219
  Transmission Date: 20141002
  Serious: No
  Sender: FDA-Public Use
  Company Number: US-GILEAD-2012-0055018

PATIENT
  Sex: Female

DRUGS (4)
  1. LETAIRIS [Suspect]
     Indication: PULMONARY HYPERTENSION
     Dosage: 10 MG, UNK
     Route: 048
  2. LETAIRIS [Suspect]
     Indication: UNEVALUABLE EVENT
  3. TYVASO [Suspect]
  4. REMODULIN [Concomitant]

REACTIONS (5)
  - Abdominal distension [Unknown]
  - Flatulence [Unknown]
  - Dizziness [Unknown]
  - Oropharyngeal pain [Unknown]
  - Localised intraabdominal fluid collection [Unknown]
